FAERS Safety Report 7223324-1 (Version None)
Quarter: 2011Q1

REPORT INFORMATION
  Report Type: 
  Country: None (occurrence: None)
  Receive Date: 20110112
  Receipt Date: 20100429
  Transmission Date: 20110831
  Serious: No
  Sender: FDA-Public Use
  Company Number: US-ALLERGAN-1005655US

PATIENT
  Age: 47 Year
  Sex: Female

DRUGS (5)
  1. RANITIDINE [Concomitant]
     Indication: GASTROOESOPHAGEAL REFLUX DISEASE
  2. EVOXAC [Concomitant]
     Indication: SJOGREN'S SYNDROME
  3. SYSTANE [Concomitant]
     Indication: DRY EYE
  4. RESTASIS [Suspect]
     Indication: DRY EYE
     Dosage: 1 GTT, Q12H
     Route: 047
     Dates: start: 20100301
  5. REGLAN [Concomitant]
     Indication: GASTROOESOPHAGEAL REFLUX DISEASE

REACTIONS (4)
  - RASH [None]
  - FACIAL PAIN [None]
  - PRURITUS [None]
  - ERYTHEMA [None]
